FAERS Safety Report 15091743 (Version 1)
Quarter: 2018Q2

REPORT INFORMATION
  Report Type: Report from Study
  Country: US (occurrence: US)
  Receive Date: 20180629
  Receipt Date: 20180629
  Transmission Date: 20180711
  Serious: No
  Sender: FDA-Public Use
  Company Number: US-AMGEN-USASP2011026970

PATIENT
  Sex: Female

DRUGS (6)
  1. PROLIA [Suspect]
     Active Substance: DENOSUMAB
     Indication: OSTEOPOROSIS POSTMENOPAUSAL
     Dosage: 60 MG, Q6MO
     Dates: start: 2010
  2. CALCIUM WITH VITAMIN D             /00944201/ [Concomitant]
     Active Substance: CALCIUM CARBONATE\CHOLECALCIFEROL
  3. DYAZIDE [Concomitant]
     Active Substance: HYDROCHLOROTHIAZIDE\TRIAMTERENE
  4. POTASSIUM [Concomitant]
     Active Substance: POTASSIUM
  5. ARMOUR THYROID [Concomitant]
     Active Substance: THYROID, PORCINE
  6. PRILOSEC [Concomitant]
     Active Substance: OMEPRAZOLE MAGNESIUM

REACTIONS (7)
  - Urinary tract infection [Recovering/Resolving]
  - Rash erythematous [Recovering/Resolving]
  - Albumin urine [Recovering/Resolving]
  - Protein urine [Recovering/Resolving]
  - Injection site erythema [Recovering/Resolving]
  - Rash pruritic [Recovering/Resolving]
  - Blood urine present [Recovering/Resolving]
